FAERS Safety Report 25182675 (Version 1)
Quarter: 2025Q2

REPORT INFORMATION
  Report Type: Spontaneous
  Country: AT (occurrence: AT)
  Receive Date: 20250410
  Receipt Date: 20250410
  Transmission Date: 20250716
  Serious: Yes (Hospitalization, Other)
  Sender: MUNDIPHARMA EDO
  Company Number: AT-NAPPMUNDI-GBR-2025-0124619

PATIENT
  Age: 71 Year
  Sex: Male

DRUGS (4)
  1. REZAFUNGIN ACETATE [Suspect]
     Active Substance: REZAFUNGIN ACETATE
     Indication: Systemic candida
  2. CASPOFUNGIN [Suspect]
     Active Substance: CASPOFUNGIN
     Indication: Systemic candida
     Dosage: 50MG ONCE DAILY
  3. RAVULIZUMAB [Suspect]
     Active Substance: RAVULIZUMAB
     Indication: Systemic candida
     Route: 065
  4. FLUCONAZOLE [Suspect]
     Active Substance: FLUCONAZOLE
     Indication: Systemic candida
     Route: 065

REACTIONS (3)
  - Soft tissue infection [Recovering/Resolving]
  - Abscess soft tissue [Recovering/Resolving]
  - Treatment failure [Unknown]
